FAERS Safety Report 9190823 (Version 2)
Quarter: 2013Q2

REPORT INFORMATION
  Report Type: Spontaneous
  Country: TR (occurrence: TR)
  Receive Date: 20130326
  Receipt Date: 20130612
  Transmission Date: 20140414
  Serious: Yes (Death)
  Sender: FDA-Public Use
  Company Number: TR-ABBOTT-13X-161-1068003-00

PATIENT
  Sex: Female

DRUGS (1)
  1. TARKA [Suspect]
     Indication: HYPERTENSION
     Dosage: DAILY DOSE + UNIT DOSE: 180/2MG
     Route: 048

REACTIONS (4)
  - Atrial fibrillation [Fatal]
  - Bradycardia [Fatal]
  - Cardiac arrest [Fatal]
  - Hypotension [Fatal]
